FAERS Safety Report 13704878 (Version 1)
Quarter: 2017Q2

REPORT INFORMATION
  Report Type: Spontaneous
  Country: US (occurrence: US)
  Receive Date: 20170630
  Receipt Date: 20170630
  Transmission Date: 20170830
  Serious: Yes (Congenital Anomaly, Other)
  Sender: FDA-Public Use
  Company Number: PHEH2017US019941

PATIENT

DRUGS (1)
  1. ZOFRAN [Suspect]
     Active Substance: ONDANSETRON HYDROCHLORIDE
     Indication: FOETAL EXPOSURE DURING PREGNANCY
     Route: 064

REACTIONS (7)
  - Foetal exposure during pregnancy [Unknown]
  - Injury [Unknown]
  - Ventricular septal defect [Unknown]
  - Transposition of the great vessels [Unknown]
  - Congenital tricuspid valve atresia [Unknown]
  - Aorta hypoplasia [Unknown]
  - Cardiac ventricular disorder [Unknown]
